FAERS Safety Report 9306100 (Version 1)
Quarter: 2013Q2

REPORT INFORMATION
  Report Type: Spontaneous
  Country: US (occurrence: None)
  Receive Date: 20130514
  Receipt Date: 20130514
  Transmission Date: 20140414
  Serious: Yes (Hospitalization)
  Sender: FDA-Public Use
  Company Number: 2011027978

PATIENT
  Age: 56 Year
  Sex: Female
  Weight: 68.04 kg

DRUGS (16)
  1. HIZENTRA (IMMUNOGLOBULIN HUMAN NORMAL) [Suspect]
     Indication: IMMUNODEFICIENCY COMMON VARIABLE
     Dosage: (10 G, 1X/WEEK, INFUSED 50ML VIA 2-4 SITES OVER 1.5-2 HOURS)
     Route: 058
     Dates: start: 20110317
  2. RESTASIS( CICLOSPORIN) [Concomitant]
  3. ASTELIN (DIPROPHYLLINE) [Concomitant]
  4. PREDNISONE (PREDNISONE) [Concomitant]
  5. DOXYCYCLINE (DOXYCYCLINE) [Concomitant]
  6. KLONOPIN (CLONAZEPAM) (TABLETS) [Concomitant]
  7. PAXIL (PAROXETINE HYDROCHLORIDE) [Concomitant]
  8. NORVASC (AMLODIPINE) [Concomitant]
  9. TOPROL XL (METOPROLOL SUCCINATE) [Concomitant]
  10. CYMBALTA (DULOXETINE HYDROCHLORIDE) [Concomitant]
  11. XANAX (ALPRAZOLAM) [Concomitant]
  12. AMBIEN (ZOLPIDEM TARTRATE) [Concomitant]
  13. ASPIRIN (ACETYLSALICYLIC ACID) [Concomitant]
  14. DIPHENHYDRAMINE (DIPHENHYDRAMINE) [Concomitant]
  15. LIDOCAINE (LIDOCAINE) [Concomitant]
  16. EPI-PEN (EPINEPHRINE HYDROCHLORIDE) [Concomitant]

REACTIONS (12)
  - Pain [None]
  - Diarrhoea [None]
  - Abdominal pain upper [None]
  - Pyrexia [None]
  - Cough [None]
  - Infusion site erythema [None]
  - Infusion site urticaria [None]
  - Upper respiratory tract infection [None]
  - Blood pressure increased [None]
  - Fatigue [None]
  - Dizziness [None]
  - Syncope [None]
